FAERS Safety Report 13946179 (Version 3)
Quarter: 2018Q1

REPORT INFORMATION
  Report Type: Spontaneous
  Country: DK (occurrence: DK)
  Receive Date: 20170907
  Receipt Date: 20180215
  Transmission Date: 20180508
  Serious: Yes (Hospitalization)
  Sender: FDA-Public Use
  Company Number: DK-009507513-1709DNK001908

PATIENT
  Age: 65 Year
  Sex: Female

DRUGS (7)
  1. INEGY [Suspect]
     Active Substance: EZETIMIBE\SIMVASTATIN
     Indication: HYPERCHOLESTEROLAEMIA
     Dosage: DOSIS: 1 TABLET OM AFTENEN, STYRKE: 10+80 MG.
     Route: 048
     Dates: start: 20091001, end: 20170818
  2. FURIX [Concomitant]
     Active Substance: FUROSEMIDE
     Indication: DIURETIC THERAPY
     Dosage: STYRKE: 40MG
     Route: 048
     Dates: start: 20160608
  3. KALEORID [Concomitant]
     Active Substance: POTASSIUM CHLORIDE
     Indication: MINERAL SUPPLEMENTATION
     Dosage: STYRKE: 750MG
     Route: 048
     Dates: start: 20160608
  4. METOPROLOL. [Concomitant]
     Active Substance: METOPROLOL
     Indication: ARRHYTHMIA
     Dosage: STYRKE: 50 MG
     Route: 048
     Dates: start: 20161207
  5. DOLOL [Concomitant]
     Active Substance: TRAMADOL
     Indication: PAIN
     Dosage: STYRKE: 50MG  DOSIS: 1 TABLET MORGEN, MIDDAG OG AFTEN EFTER BEHOV.
     Route: 048
     Dates: start: 20160816
  6. ELTROXIN [Concomitant]
     Active Substance: LEVOTHYROXINE
     Indication: MYXOEDEMA
     Dosage: STYRKE: 100 MG + 50 MG DOSIS: DOSERING EFTER SKRIFTLIG ANVISNING.
     Route: 048
     Dates: start: 20150805
  7. ELIQUIS [Concomitant]
     Active Substance: APIXABAN
     Indication: THROMBOSIS PROPHYLAXIS
     Dosage: STYRKE: 5 MG.
     Route: 048
     Dates: start: 20161221, end: 20170818

REACTIONS (18)
  - Memory impairment [Recovering/Resolving]
  - Blood creatine increased [Recovered/Resolved]
  - Hepatic enzyme abnormal [Recovered/Resolved]
  - Blood lactate dehydrogenase increased [Recovering/Resolving]
  - Discomfort [Recovering/Resolving]
  - Heart rate irregular [Unknown]
  - Gait disturbance [Recovering/Resolving]
  - Sensory disturbance [Unknown]
  - Confusional state [Unknown]
  - Abdominal pain upper [Recovering/Resolving]
  - Pain in extremity [Unknown]
  - Restlessness [Unknown]
  - Rhabdomyolysis [Recovering/Resolving]
  - Arthralgia [Recovering/Resolving]
  - Fatigue [Recovering/Resolving]
  - Muscle atrophy [Unknown]
  - Myalgia [Recovering/Resolving]
  - Blood creatine phosphokinase increased [Recovered/Resolved]

NARRATIVE: CASE EVENT DATE: 201707
